FAERS Safety Report 10600126 (Version 1)
Quarter: 2014Q4

REPORT INFORMATION
  Report Type: Spontaneous
  Country: DE (occurrence: DE)
  Receive Date: 20141122
  Receipt Date: 20141122
  Transmission Date: 20150529
  Serious: Yes (Death, Congenital Anomaly, Other)
  Sender: FDA-Public Use
  Company Number: DE-DRREDDYS-GER/GER/14/0044480

PATIENT
  Age: 1 Day
  Sex: Male
  Weight: 2.34 kg

DRUGS (13)
  1. DEKRISTOL 20000 I.E. [Concomitant]
     Indication: PRODUCT USED FOR UNKNOWN INDICATION
     Route: 064
     Dates: start: 20130702, end: 20131217
  2. AMLODIPINE [Concomitant]
     Active Substance: AMLODIPINE BESYLATE
     Indication: PRODUCT USED FOR UNKNOWN INDICATION
     Route: 064
  3. L-THYROXIN 25 HENNING [Concomitant]
     Indication: PRODUCT USED FOR UNKNOWN INDICATION
     Route: 064
     Dates: start: 20130702, end: 20140114
  4. AMPICILLIN [Concomitant]
     Active Substance: AMPICILLIN
     Indication: PRODUCT USED FOR UNKNOWN INDICATION
     Route: 064
     Dates: start: 20140114, end: 20140114
  5. DAS GESUNDE PLUS - FOLSAURE 600 [Concomitant]
     Indication: PRODUCT USED FOR UNKNOWN INDICATION
     Route: 064
     Dates: start: 20130702, end: 20131217
  6. PROGRAF [Suspect]
     Active Substance: TACROLIMUS\TACROLIMUS ANHYDROUS
     Indication: PRODUCT USED FOR UNKNOWN INDICATION
     Route: 064
     Dates: start: 20130702, end: 20140114
  7. BETAMETHASONE [Concomitant]
     Active Substance: BETAMETHASONE
     Indication: PRODUCT USED FOR UNKNOWN INDICATION
     Route: 064
  8. ADALAT [Concomitant]
     Active Substance: NIFEDIPINE
     Indication: PRODUCT USED FOR UNKNOWN INDICATION
     Route: 064
  9. METHYLDOPA. [Suspect]
     Active Substance: METHYLDOPA
     Indication: PRODUCT USED FOR UNKNOWN INDICATION
     Route: 064
     Dates: start: 20130702, end: 20140114
  10. BELOC-ZOK MITE [Concomitant]
     Active Substance: METOPROLOL SUCCINATE
     Indication: PRODUCT USED FOR UNKNOWN INDICATION
     Route: 064
     Dates: start: 20140114, end: 20140114
  11. PARTUSISTEN [Concomitant]
     Active Substance: FENOTEROL
     Indication: PRODUCT USED FOR UNKNOWN INDICATION
     Route: 064
     Dates: start: 20140114, end: 20140114
  12. METOPROLOL [Suspect]
     Active Substance: METOPROLOL
     Indication: PRODUCT USED FOR UNKNOWN INDICATION
     Route: 064
     Dates: start: 20130702, end: 20131217
  13. AZATHIOPRINE. [Suspect]
     Active Substance: AZATHIOPRINE
     Indication: PRODUCT USED FOR UNKNOWN INDICATION
     Route: 064
     Dates: start: 20130702, end: 20140114

REACTIONS (5)
  - Congenital cystic lung [Fatal]
  - Premature baby [Unknown]
  - Death neonatal [Fatal]
  - Foetal exposure during pregnancy [Unknown]
  - Hydrops foetalis [Not Recovered/Not Resolved]

NARRATIVE: CASE EVENT DATE: 20140114
